FAERS Safety Report 6082824-0 (Version None)
Quarter: 2009Q1

REPORT INFORMATION
  Report Type: 
  Country: None (occurrence: None)
  Receive Date: 20090218
  Receipt Date: 20090210
  Transmission Date: 20090719
  Serious: Yes (Hospitalization)
  Sender: FDA-Public Use
  Company Number: US-ELI_LILLY_AND_COMPANY-US200902002142

PATIENT
  Sex: Female
  Weight: 126.98 kg

DRUGS (5)
  1. BYETTA [Suspect]
     Indication: TYPE 2 DIABETES MELLITUS
     Dosage: 5 UG, 2/D
     Route: 058
     Dates: start: 20080101, end: 20080101
  2. BYETTA [Suspect]
     Dosage: 5 UG, 2/D
     Route: 058
     Dates: start: 20080101
  3. GLYBURIDE AND METFORMIN HCL [Concomitant]
     Indication: TYPE 2 DIABETES MELLITUS
     Dosage: UNK, 2/D
  4. AVAPRO [Concomitant]
     Indication: BLOOD PRESSURE
  5. HYDROCHLOROTHIAZIDE [Concomitant]
     Indication: BLOOD PRESSURE

REACTIONS (17)
  - ANAL PRURITUS [None]
  - ANOREXIA [None]
  - ARTHRALGIA [None]
  - BACK DISORDER [None]
  - BLOOD GLUCOSE DECREASED [None]
  - BLOOD GLUCOSE INCREASED [None]
  - CARPAL TUNNEL SYNDROME [None]
  - FEELING JITTERY [None]
  - HYPERPHAGIA [None]
  - INFLAMMATION [None]
  - INTESTINAL POLYP [None]
  - KNEE ARTHROPLASTY [None]
  - PERIPHERAL NERVE OPERATION [None]
  - STRESS [None]
  - TONSILLECTOMY [None]
  - TREMOR [None]
  - WEIGHT DECREASED [None]
